FAERS Safety Report 14815282 (Version 1)
Quarter: 2018Q2

REPORT INFORMATION
  Report Type: Other
  Country: US (occurrence: US)
  Receive Date: 20180426
  Receipt Date: 20180426
  Transmission Date: 20180711
  Serious: Yes (Hospitalization)
  Sender: FDA-Public Use
  Company Number: US-LEADING PHARMA-2046618

PATIENT
  Age: 37 Year
  Sex: Male

DRUGS (1)
  1. BENZTROPINE MESYLATE. [Suspect]
     Active Substance: BENZTROPINE MESYLATE

REACTIONS (2)
  - Anticholinergic syndrome [Recovered/Resolved]
  - Toxicity to various agents [None]
